FAERS Safety Report 6846012-X (Version None)
Quarter: 2010Q3

REPORT INFORMATION
  Report Type: 
  Country: None (occurrence: None)
  Receive Date: 20100715
  Receipt Date: 20070902
  Transmission Date: 20110219
  Serious: No
  Sender: FDA-Public Use
  Company Number: US-PFIZER INC-2007074278

PATIENT
  Sex: Female
  Weight: 61.4 kg

DRUGS (4)
  1. CHANTIX [Suspect]
     Indication: SMOKING CESSATION THERAPY
     Dates: start: 20070827
  2. ALCOHOL [Suspect]
  3. PROZAC [Concomitant]
  4. TRAZODONE HYDROCHLORIDE [Concomitant]

REACTIONS (2)
  - ALCOHOL INTOLERANCE [None]
  - INCORRECT DOSE ADMINISTERED [None]
